FAERS Safety Report 20981167 (Version 1)
Quarter: 2022Q2

REPORT INFORMATION
  Report Type: Spontaneous
  Country: GB (occurrence: GB)
  Receive Date: 20220620
  Receipt Date: 20220620
  Transmission Date: 20220721
  Serious: Yes (Other)
  Sender: FDA-Public Use
  Company Number: GB-GLAXOSMITHKLINE-GBCH2022020988

PATIENT

DRUGS (2)
  1. NICOTINELL [Suspect]
     Active Substance: NICOTINE
     Indication: Smoking cessation therapy
     Dosage: UNK, ABOUT 20 LOZENGES PER DAY
  2. NICOTINELL [Suspect]
     Active Substance: NICOTINE
     Indication: Smoking cessation therapy
     Dosage: UNK, 40-50 LOZENGES PER DAY

REACTIONS (5)
  - Seizure [Unknown]
  - Nicotine dependence [Unknown]
  - Withdrawal syndrome [Unknown]
  - Overdose [Unknown]
  - Drug tolerance increased [Unknown]
